FAERS Safety Report 8810864 (Version 1)
Quarter: 2012Q4

REPORT INFORMATION
  Report Type: Spontaneous
  Country: US (occurrence: None)
  Receive Date: 20120924
  Receipt Date: 20120924
  Transmission Date: 20130627
  Serious: No
  Sender: FDA-Public Use
  Company Number: None

PATIENT
  Age: 12 Year
  Sex: Female
  Weight: 58.8 kg

DRUGS (1)
  1. DEPO-PROVERA [Suspect]
     Dates: start: 20120405, end: 20120405

REACTIONS (5)
  - Nausea [None]
  - Depression [None]
  - Decreased appetite [None]
  - Suicidal ideation [None]
  - Initial insomnia [None]
